FAERS Safety Report 11573407 (Version 2)
Quarter: 2017Q1

REPORT INFORMATION
  Report Type: Report from Study
  Country: GB (occurrence: GB)
  Receive Date: 20150929
  Receipt Date: 20170227
  Transmission Date: 20170428
  Serious: Yes (Hospitalization, Other)
  Sender: FDA-Public Use
  Company Number: GB-SEATTLE GENETICS-2015SGN01551

PATIENT

DRUGS (8)
  1. BRENTUXIMAB VEDOTIN [Suspect]
     Active Substance: BRENTUXIMAB VEDOTIN
     Indication: HODGKIN^S DISEASE
     Dosage: 104.4 MG, UNK
     Route: 042
     Dates: start: 20150826
  2. BRENTUXIMAB VEDOTIN [Suspect]
     Active Substance: BRENTUXIMAB VEDOTIN
     Dosage: 104.4 MG, UNK
     Route: 042
     Dates: start: 20150826, end: 20150909
  3. DOXORUBICIN [Suspect]
     Active Substance: DOXORUBICIN
     Indication: HODGKIN^S DISEASE
     Dosage: 50 MG, UNK
     Route: 042
     Dates: start: 20150826
  4. DOXORUBICIN [Suspect]
     Active Substance: DOXORUBICIN
     Dosage: 50 MG, UNK
     Route: 042
     Dates: start: 20150826, end: 20150909
  5. DACARBAZINE. [Suspect]
     Active Substance: DACARBAZINE
     Indication: HODGKIN^S DISEASE
     Dosage: 770 MG, UNK
     Route: 042
     Dates: start: 20150826
  6. DACARBAZINE. [Suspect]
     Active Substance: DACARBAZINE
     Dosage: 770 MG, UNK
     Route: 042
     Dates: start: 20150826, end: 20150909
  7. VINBLASTINE [Suspect]
     Active Substance: VINBLASTINE
     Indication: HODGKIN^S DISEASE
     Dosage: 12 MG, UNK
     Route: 042
     Dates: start: 20150826
  8. VINBLASTINE [Suspect]
     Active Substance: VINBLASTINE
     Dosage: 12 MG, UNK
     Route: 042
     Dates: start: 20150826, end: 20150909

REACTIONS (6)
  - Acute kidney injury [Recovered/Resolved]
  - Type 2 diabetes mellitus [Recovered/Resolved with Sequelae]
  - Constipation [Recovered/Resolved]
  - Hyponatraemia [Recovering/Resolving]
  - Hypomagnesaemia [Not Recovered/Not Resolved]
  - Febrile neutropenia [Recovered/Resolved]

NARRATIVE: CASE EVENT DATE: 20150915
